FAERS Safety Report 10631665 (Version 29)
Quarter: 2017Q4

REPORT INFORMATION
  Report Type: Report from Study
  Country: CA (occurrence: CA)
  Receive Date: 20141205
  Receipt Date: 20171013
  Transmission Date: 20180320
  Serious: Yes (Life-Threatening, Hospitalization, Other)
  Sender: FDA-Public Use
  Company Number: PHHY2011CA29891

PATIENT
  Age: 79 Year
  Sex: Female
  Weight: 52 kg

DRUGS (10)
  1. SYNTHROID [Concomitant]
     Active Substance: LEVOTHYROXINE SODIUM
     Indication: PRODUCT USED FOR UNKNOWN INDICATION
     Route: 065
  2. SANDOSTATIN LAR DEPOT [Suspect]
     Active Substance: OCTREOTIDE ACETATE
     Dosage: 40 MG, QMO (EVERY 4 WEEKS)
     Route: 030
     Dates: start: 20150703
  3. NORVASC [Concomitant]
     Active Substance: AMLODIPINE BESYLATE
     Indication: PRODUCT USED FOR UNKNOWN INDICATION
     Route: 065
  4. PANTOLOC [Concomitant]
     Active Substance: PANTOPRAZOLE SODIUM
     Indication: PRODUCT USED FOR UNKNOWN INDICATION
     Route: 065
  5. EPIDERM [Concomitant]
     Active Substance: BETAMETHASONE VALERATE\CLIOQUINOL\GENTAMICIN SULFATE\TOLNAFTATE
     Indication: PRODUCT USED FOR UNKNOWN INDICATION
     Route: 065
  6. SANDOSTATIN LAR DEPOT [Suspect]
     Active Substance: OCTREOTIDE ACETATE
     Dosage: 30 MG, QMO (EVERY 4 WEEKS)
     Route: 030
  7. DIOVAN [Suspect]
     Active Substance: VALSARTAN
     Indication: PRODUCT USED FOR UNKNOWN INDICATION
     Dosage: UNK
     Route: 065
  8. SANDOSTATIN LAR DEPOT [Suspect]
     Active Substance: OCTREOTIDE ACETATE
     Dosage: 30 MG, QMO (EVERY 4 WEEKS)
     Route: 030
  9. SANDOSTATIN [Suspect]
     Active Substance: OCTREOTIDE ACETATE
     Indication: CARCINOID TUMOUR
     Dosage: ONCE/SINGLE, TEST DOSE
     Route: 058
     Dates: start: 201102, end: 201102
  10. SANDOSTATIN LAR DEPOT [Suspect]
     Active Substance: OCTREOTIDE ACETATE
     Indication: CARCINOID TUMOUR
     Dosage: 30 MG, QMO (EVERY 4 WEEKS)
     Route: 030
     Dates: start: 20110216

REACTIONS (37)
  - Haematochezia [Unknown]
  - Seasonal allergy [Unknown]
  - Anxiety [Unknown]
  - Crying [Unknown]
  - Cough [Recovered/Resolved]
  - Weight increased [Unknown]
  - Heart rate decreased [Unknown]
  - Abdominal distension [Recovering/Resolving]
  - Abdominal discomfort [Unknown]
  - Abdominal pain [Unknown]
  - Lacrimation increased [Unknown]
  - Rhinorrhoea [Recovered/Resolved]
  - Memory impairment [Unknown]
  - Blood pressure diastolic decreased [Unknown]
  - Flatulence [Unknown]
  - Weight decreased [Unknown]
  - Pollakiuria [Unknown]
  - Oropharyngeal pain [Recovered/Resolved]
  - Hunger [Unknown]
  - Tongue discolouration [Unknown]
  - Constipation [Unknown]
  - Intestinal obstruction [Unknown]
  - Nausea [Unknown]
  - Blood pressure systolic increased [Unknown]
  - Nasopharyngitis [Recovered/Resolved]
  - Stress [Unknown]
  - Abdominal pain upper [Unknown]
  - Body temperature decreased [Recovered/Resolved]
  - Abdominal pain lower [Unknown]
  - Vomiting [Unknown]
  - Syringe issue [Unknown]
  - Malaise [Not Recovered/Not Resolved]
  - Sleep disorder [Unknown]
  - Blood pressure increased [Unknown]
  - Fatigue [Recovered/Resolved]
  - Frequent bowel movements [Unknown]
  - Blood glucose increased [Recovered/Resolved]

NARRATIVE: CASE EVENT DATE: 20140117
